FAERS Safety Report 9929445 (Version 2)
Quarter: 2014Q1

REPORT INFORMATION
  Report Type: Spontaneous
  Country: US (occurrence: US)
  Receive Date: 20140227
  Receipt Date: 20140313
  Transmission Date: 20141002
  Serious: No
  Sender: FDA-Public Use
  Company Number: US-PFIZER INC-2014057959

PATIENT
  Age: 55 Year
  Sex: Female
  Weight: 112 kg

DRUGS (5)
  1. CHANTIX [Suspect]
     Indication: SMOKING CESSATION THERAPY
     Dosage: UNK
     Route: 048
     Dates: start: 2011, end: 2011
  2. CHANTIX [Suspect]
     Dosage: UNK
     Route: 048
     Dates: start: 201310, end: 201401
  3. MORPHINE [Concomitant]
     Indication: LIMB DISCOMFORT
     Dosage: UNK
  4. CELEXA [Concomitant]
     Indication: BIPOLAR DISORDER
     Dosage: 10 MG, DAILY
  5. SYNTHROID [Concomitant]
     Indication: THYROID DISORDER
     Dosage: 100 UG, DAILY

REACTIONS (1)
  - Abnormal dreams [Unknown]
